FAERS Safety Report 7537241-0 (Version None)
Quarter: 2011Q2

REPORT INFORMATION
  Report Type: 
  Country: None (occurrence: None)
  Receive Date: 20110603
  Receipt Date: 20110518
  Transmission Date: 20111010
  Serious: Yes (Hospitalization, Other)
  Sender: FDA-Public Use
  Company Number: 2011MA006061

PATIENT
  Age: 41 Year
  Sex: Male

DRUGS (3)
  1. BACTRIM [Suspect]
     Indication: PROPHYLAXIS
  2. BACTRIM [Suspect]
     Indication: PNEUMONIA
  3. METRONIDAZOLE [Concomitant]

REACTIONS (12)
  - HEPATIC AMOEBIASIS [None]
  - DYSPNOEA [None]
  - PLEURAL EFFUSION [None]
  - BLOOD PRESSURE DECREASED [None]
  - CACHEXIA [None]
  - BREATH SOUNDS ABNORMAL [None]
  - AGRANULOCYTOSIS [None]
  - ORAL CANDIDIASIS [None]
  - HYPONATRAEMIA [None]
  - AMOEBIC COLITIS [None]
  - EMPYEMA [None]
  - HAEMOGLOBIN DECREASED [None]
